FAERS Safety Report 13874301 (Version 1)
Quarter: 2017Q3

REPORT INFORMATION
  Report Type: Spontaneous
  Country: US (occurrence: US)
  Receive Date: 20170816
  Receipt Date: 20170816
  Transmission Date: 20171127
  Serious: No
  Sender: FDA-Public Use
  Company Number: US-ROCHE-1012856

PATIENT
  Sex: Female

DRUGS (1)
  1. LUCENTIS [Suspect]
     Active Substance: RANIBIZUMAB
     Indication: RETINAL VEIN OCCLUSION
     Route: 050
     Dates: start: 20111011

REACTIONS (9)
  - Lacrimation increased [Unknown]
  - Dizziness [Unknown]
  - Vision blurred [Unknown]
  - Ill-defined disorder [Unknown]
  - Eye pruritus [Unknown]
  - Cough [Unknown]
  - Head discomfort [Unknown]
  - Sneezing [Unknown]
  - Nasal congestion [Unknown]
